FAERS Safety Report 21364869 (Version 2)
Quarter: 2022Q4

REPORT INFORMATION
  Report Type: Spontaneous
  Country: US (occurrence: US)
  Receive Date: 20220922
  Receipt Date: 20221115
  Transmission Date: 20230112
  Serious: No
  Sender: FDA-Public Use
  Company Number: US-KARYOPHARM-2022KPT001017

PATIENT

DRUGS (13)
  1. XPOVIO [Suspect]
     Active Substance: SELINEXOR
     Indication: Plasma cell myeloma
     Dosage: 60 MG, WEEKLY
     Route: 048
     Dates: start: 20220816
  2. XPOVIO [Suspect]
     Active Substance: SELINEXOR
     Dosage: 60 MG, WEEKLY
     Route: 048
     Dates: start: 2022
  3. POMALYST [Concomitant]
     Active Substance: POMALIDOMIDE
  4. SYNTHROID [Concomitant]
     Active Substance: LEVOTHYROXINE SODIUM
  5. ELIQUIS [Concomitant]
     Active Substance: APIXABAN
  6. ACYCLOVIR [Concomitant]
     Active Substance: ACYCLOVIR
  7. OMEPRAZOLE [Concomitant]
     Active Substance: OMEPRAZOLE
  8. DEXAMETHASONE [Concomitant]
     Active Substance: DEXAMETHASONE
  9. DIAZEPAM [Concomitant]
     Active Substance: DIAZEPAM
  10. ZOLPIDEM [Concomitant]
     Active Substance: ZOLPIDEM TARTRATE
  11. OLANZAPINE [Concomitant]
     Active Substance: OLANZAPINE
  12. GRANISETRON [Concomitant]
     Active Substance: GRANISETRON
  13. ONDANSETRON [Concomitant]
     Active Substance: ONDANSETRON

REACTIONS (3)
  - Large intestine infection [Unknown]
  - Fatigue [Not Recovered/Not Resolved]
  - Intentional dose omission [Unknown]

NARRATIVE: CASE EVENT DATE: 20220101
